FAERS Safety Report 13385549 (Version 1)
Quarter: 2017Q1

REPORT INFORMATION
  Report Type: Spontaneous
  Country: DE (occurrence: DE)
  Receive Date: 20170330
  Receipt Date: 20170330
  Transmission Date: 20170429
  Serious: Yes (Other)
  Sender: FDA-Public Use
  Company Number: DE-ABBVIE-17P-062-1920258-00

PATIENT
  Age: 70 Year
  Sex: Male

DRUGS (11)
  1. OBINUTUZUMAB [Concomitant]
     Active Substance: OBINUTUZUMAB
     Dates: start: 20161116, end: 20161116
  2. OBINUTUZUMAB [Concomitant]
     Active Substance: OBINUTUZUMAB
     Dates: start: 20161107, end: 20161107
  3. OBINUTUZUMAB [Concomitant]
     Active Substance: OBINUTUZUMAB
     Dates: start: 20161130, end: 20161130
  4. VENCLYXTO [Suspect]
     Active Substance: VENETOCLAX
     Indication: CHRONIC LYMPHOCYTIC LEUKAEMIA
     Route: 048
     Dates: start: 20161117, end: 20161123
  5. OBINUTUZUMAB [Concomitant]
     Active Substance: OBINUTUZUMAB
     Indication: PRODUCT USED FOR UNKNOWN INDICATION
     Dates: start: 20161028, end: 20161028
  6. OBINUTUZUMAB [Concomitant]
     Active Substance: OBINUTUZUMAB
     Dates: start: 20161031, end: 20161031
  7. OBINUTUZUMAB [Concomitant]
     Active Substance: OBINUTUZUMAB
     Dates: start: 20170125, end: 20170125
  8. VENCLYXTO [Suspect]
     Active Substance: VENETOCLAX
     Route: 048
     Dates: start: 20161124, end: 20161130
  9. VENCLYXTO [Suspect]
     Active Substance: VENETOCLAX
     Route: 048
     Dates: start: 20161201, end: 20170109
  10. VENCLYXTO [Suspect]
     Active Substance: VENETOCLAX
     Route: 048
     Dates: start: 20170126
  11. OBINUTUZUMAB [Concomitant]
     Active Substance: OBINUTUZUMAB
     Dates: start: 20161229, end: 20161229

REACTIONS (5)
  - Febrile neutropenia [Recovered/Resolved]
  - Atrial fibrillation [Unknown]
  - Neutropenia [Recovered/Resolved]
  - Urinary tract infection [Recovered/Resolved]
  - Pneumonia [Recovered/Resolved]

NARRATIVE: CASE EVENT DATE: 20170109
